FAERS Safety Report 10083152 (Version 1)
Quarter: 2014Q2

REPORT INFORMATION
  Report Type: Spontaneous
  Country: US (occurrence: US)
  Receive Date: 20140417
  Receipt Date: 20140417
  Transmission Date: 20141212
  Serious: No
  Sender: FDA-Public Use
  Company Number: US-BIOGENIDEC-2014BI035818

PATIENT
  Sex: Male

DRUGS (4)
  1. AVONEX [Suspect]
     Indication: MULTIPLE SCLEROSIS
     Route: 030
     Dates: start: 20060830, end: 2010
  2. AVONEX [Suspect]
     Indication: MULTIPLE SCLEROSIS
     Route: 030
     Dates: start: 20120626, end: 2013
  3. AVONEX [Suspect]
     Indication: MULTIPLE SCLEROSIS
     Dates: start: 2013
  4. TYSABRI [Concomitant]
     Route: 042
     Dates: start: 20100330, end: 20120606

REACTIONS (2)
  - Tremor [Not Recovered/Not Resolved]
  - Somnolence [Unknown]
